FAERS Safety Report 22300335 (Version 1)
Quarter: 2023Q2

REPORT INFORMATION
  Report Type: Report from Study
  Country: US (occurrence: US)
  Receive Date: 20230509
  Receipt Date: 20230509
  Transmission Date: 20230721
  Serious: Yes (Hospitalization)
  Sender: FDA-Public Use
  Company Number: US-TAKEDA-2022TUS018242

PATIENT
  Age: 74 Year
  Sex: Male
  Weight: 68 kg

DRUGS (5)
  1. BRIGATINIB [Suspect]
     Active Substance: BRIGATINIB
     Indication: Lung adenocarcinoma
     Dosage: 180 MILLIGRAM, QD
     Route: 048
     Dates: end: 20230503
  2. BRIGATINIB [Suspect]
     Active Substance: BRIGATINIB
     Indication: Lung neoplasm malignant
  3. BRIGATINIB [Suspect]
     Active Substance: BRIGATINIB
     Indication: Lung neoplasm malignant
  4. COLCRYS [Suspect]
     Active Substance: COLCHICINE
     Indication: Myocardial ischaemia
     Dosage: UNK
     Route: 065
  5. RANOLAZINE [Concomitant]
     Active Substance: RANOLAZINE
     Dosage: 1000 MILLIGRAM
     Route: 065

REACTIONS (5)
  - Hospitalisation [Recovered/Resolved]
  - Urticaria [Unknown]
  - Pruritus [Unknown]
  - Memory impairment [Unknown]
  - Product dose omission issue [Unknown]

NARRATIVE: CASE EVENT DATE: 20230301
